FAERS Safety Report 24878852 (Version 2)
Quarter: 2025Q1

REPORT INFORMATION
  Report Type: Spontaneous
  Country: GR (occurrence: GR)
  Receive Date: 20250123
  Receipt Date: 20250127
  Transmission Date: 20250409
  Serious: Yes (Other)
  Sender: PFIZER
  Company Number: GR-PFM-2025-00287

PATIENT
  Age: 68 Year
  Sex: Female

DRUGS (2)
  1. BRAFTOVI [Suspect]
     Active Substance: ENCORAFENIB
     Indication: Lung neoplasm malignant
     Route: 065
     Dates: start: 2024
  2. MEKTOVI [Suspect]
     Active Substance: BINIMETINIB
     Indication: Lung neoplasm malignant
     Route: 065
     Dates: start: 2024

REACTIONS (4)
  - Visual impairment [Unknown]
  - Visual acuity reduced [Unknown]
  - Prescribed underdose [Unknown]
  - Off label use [Unknown]

NARRATIVE: CASE EVENT DATE: 20240101
